FAERS Safety Report 8314860-5 (Version None)
Quarter: 2012Q2

REPORT INFORMATION
  Report Type: 
  Country: None (occurrence: None)
  Receive Date: 20120426
  Receipt Date: 20120120
  Transmission Date: 20120825
  Serious: No
  Sender: FDA-Public Use
  Company Number: US-MYLANLABS-2012S1001745

PATIENT
  Age: 61 Year
  Sex: Female

DRUGS (1)
  1. CLONIDINE [Suspect]
     Indication: BLOOD PRESSURE
     Dosage: QWEEK
     Route: 062
     Dates: start: 20120103, end: 20120107

REACTIONS (2)
  - PAIN [None]
  - HEADACHE [None]
